FAERS Safety Report 9564114 (Version 1)
Quarter: 2013Q3

REPORT INFORMATION
  Report Type: Spontaneous
  Country: FR (occurrence: FR)
  Receive Date: 20130927
  Receipt Date: 20130927
  Transmission Date: 20140515
  Serious: Yes (Hospitalization, Other)
  Sender: FDA-Public Use
  Company Number: FR-BRISTOL-MYERS SQUIBB COMPANY-19410042

PATIENT
  Age: 49 Year
  Sex: Male

DRUGS (1)
  1. YERVOY [Suspect]
     Dosage: LAST ADMINISTERED ON 02-AUG-2013

REACTIONS (2)
  - Diarrhoea [Unknown]
  - Weight decreased [Unknown]
